FAERS Safety Report 7427283-8 (Version None)
Quarter: 2011Q2

REPORT INFORMATION
  Report Type: 
  Country: None (occurrence: None)
  Receive Date: 20110420
  Receipt Date: 20110414
  Transmission Date: 20111010
  Serious: Yes (Other)
  Sender: FDA-Public Use
  Company Number: US-PFIZER INC-2011083350

PATIENT
  Sex: Female
  Weight: 49.433 kg

DRUGS (7)
  1. CO-Q-10 [Concomitant]
     Dosage: UNK
  2. ACETYLSALICYLIC ACID [Concomitant]
     Dosage: UNK
  3. LISINOPRIL AND HYDROCHLOROTHIAZIDE [Concomitant]
     Dosage: 12.5 MG, 1X/DAY
  4. CALCIUM CITRATE [Concomitant]
     Dosage: UNK
  5. LOVAZA [Concomitant]
     Dosage: UNK
  6. EFFEXOR XR [Suspect]
     Dosage: 75 MG, UNK
     Route: 048
  7. VITAMIN D [Concomitant]
     Dosage: UNK

REACTIONS (5)
  - DIZZINESS [None]
  - IMPAIRED DRIVING ABILITY [None]
  - FATIGUE [None]
  - BLOOD PRESSURE DECREASED [None]
  - VISION BLURRED [None]
